FAERS Safety Report 17908057 (Version 2)
Quarter: 2021Q1

REPORT INFORMATION
  Report Type: Spontaneous
  Country: US (occurrence: US)
  Receive Date: 20200617
  Receipt Date: 20210325
  Transmission Date: 20210419
  Serious: No
  Sender: FDA-Public Use
  Company Number: US-SA-2020SA150883

PATIENT
  Age: 13 Year
  Sex: Female

DRUGS (1)
  1. DUPIXENT [Suspect]
     Active Substance: DUPILUMAB
     Indication: DERMATITIS ATOPIC
     Dosage: 300 MG, QOW
     Route: 058
     Dates: start: 20190618

REACTIONS (6)
  - Dyskinesia [Unknown]
  - Pruritus [Unknown]
  - Nausea [Unknown]
  - Muscle twitching [Unknown]
  - Skin exfoliation [Unknown]
  - Dry skin [Unknown]
